FAERS Safety Report 7284550-9 (Version None)
Quarter: 2011Q1

REPORT INFORMATION
  Report Type: 
  Country: None (occurrence: None)
  Receive Date: 20110209
  Receipt Date: 20101229
  Transmission Date: 20110831
  Serious: Yes (Life-Threatening)
  Sender: FDA-Public Use
  Company Number: CA-BAYER-2010-008623

PATIENT
  Age: 86 Year
  Weight: 71.5 kg

DRUGS (11)
  1. COVERSYL [Concomitant]
  2. RISPERDAL [Concomitant]
  3. SYNTHROID [Concomitant]
  4. AVELOX [Suspect]
     Dosage: 400 MG, QD
     Route: 048
  5. NEXIUM [Concomitant]
  6. COUMADIN [Concomitant]
  7. DIGOXIN [Concomitant]
  8. FUROSEMIDE [Concomitant]
  9. ASPIRIN [Concomitant]
  10. IRON SULFATETHIAMIN COMPOUND TAB [Concomitant]
  11. METOPROLOL [Concomitant]

REACTIONS (1)
  - HYPOGLYCAEMIA [None]
